FAERS Safety Report 6694032-0 (Version None)
Quarter: 2010Q2

REPORT INFORMATION
  Report Type: 
  Country: None (occurrence: None)
  Receive Date: 20100423
  Receipt Date: 20100416
  Transmission Date: 20101027
  Serious: Yes (Hospitalization)
  Sender: FDA-Public Use
  Company Number: US-PERRIGO-10US008879

PATIENT
  Sex: Female
  Weight: 68.027 kg

DRUGS (5)
  1. IBUPROFEN 200 MG 604 [Suspect]
     Indication: ARTHRALGIA
     Dosage: 1200 MG, SINGLE
     Route: 048
     Dates: start: 20100415, end: 20100415
  2. SIMVASTATIN [Concomitant]
     Indication: BLOOD CHOLESTEROL INCREASED
     Dosage: UNK, DAILY
     Route: 048
     Dates: start: 20090416
  3. WELLBUTRIN [Concomitant]
     Indication: DEPRESSION
     Dosage: 150 MG, QD
     Route: 048
     Dates: start: 20000416
  4. ZOLOFT [Concomitant]
     Indication: DEPRESSION
     Dosage: 125 MG, QD
     Route: 048
     Dates: start: 20000416
  5. ZANTAC [Concomitant]
     Indication: DRUG USE FOR UNKNOWN INDICATION
     Dosage: UNK
     Route: 048
     Dates: end: 20100419

REACTIONS (8)
  - ANAPHYLACTIC REACTION [None]
  - ANGIOEDEMA [None]
  - DYSPNOEA [None]
  - ERYTHEMA [None]
  - INCORRECT DOSE ADMINISTERED [None]
  - PHARYNGEAL OEDEMA [None]
  - SWELLING FACE [None]
  - SWOLLEN TONGUE [None]
